FAERS Safety Report 4922691-9 (Version None)
Quarter: 2006Q1

REPORT INFORMATION
  Report Type: 
  Country: None (occurrence: None)
  Receive Date: 20060224
  Receipt Date: 20060216
  Transmission Date: 20060701
  Serious: Yes (Hospitalization)
  Sender: FDA-Public Use
  Company Number: CA-ABBOTT-06P-028-0325632-00

PATIENT
  Age: 12 Year
  Sex: Female

DRUGS (1)
  1. BIAXIN [Suspect]
     Indication: PNEUMONIA
     Route: 048
     Dates: start: 20060101

REACTIONS (3)
  - GENITAL PAIN FEMALE [None]
  - PAIN [None]
  - VULVAL ULCERATION [None]
